FAERS Safety Report 24701525 (Version 2)
Quarter: 2025Q1

REPORT INFORMATION
  Report Type: Report from Study
  Country: IN (occurrence: IN)
  Receive Date: 20241205
  Receipt Date: 20250101
  Transmission Date: 20250408
  Serious: Yes (Death, Hospitalization)
  Sender: ROCHE
  Company Number: IN-ROCHE-10000145835

PATIENT
  Age: 72 Year
  Sex: Female

DRUGS (1)
  1. TECENTRIQ [Suspect]
     Active Substance: ATEZOLIZUMAB
     Indication: Lung neoplasm malignant
     Route: 042
     Dates: start: 20240830

REACTIONS (2)
  - Blood glucose decreased [Unknown]
  - Death [Fatal]

NARRATIVE: CASE EVENT DATE: 20241228
